FAERS Safety Report 17011574 (Version 3)
Quarter: 2019Q4

REPORT INFORMATION
  Report Type: Spontaneous
  Country: JP (occurrence: JP)
  Receive Date: 20191108
  Receipt Date: 20191220
  Transmission Date: 20200122
  Serious: Yes (Hospitalization, Other)
  Sender: FDA-Public Use
  Company Number: JP-ASTRAZENECA-2019SF57732

PATIENT
  Age: 79 Year
  Sex: Male

DRUGS (11)
  1. VINCRISTINE SULFATE. [Concomitant]
     Active Substance: VINCRISTINE SULFATE
     Dosage: DOSE UNKNOWN
     Route: 065
  2. FASENRA [Suspect]
     Active Substance: BENRALIZUMAB
     Indication: ASTHMA
     Dosage: DOSE UNKNOWN
     Route: 058
  3. FASENRA [Suspect]
     Active Substance: BENRALIZUMAB
     Indication: ASTHMA
     Dosage: DOSE UNKNOWN
     Route: 058
  4. RITUXIMAB(GENETICAL RECOMBINATION) [Concomitant]
     Active Substance: RITUXIMAB
     Dosage: DOSE UNKNOWN
     Route: 065
  5. G-LASTA [Concomitant]
     Active Substance: PEGFILGRASTIM
     Dosage: DOSE UNKNOWN
     Route: 065
  6. METHOTREXATE. [Concomitant]
     Active Substance: METHOTREXATE
     Dosage: 3.0G UNKNOWN
     Route: 065
  7. FILGRASTIM(GENETICAL RECOMBINATION) [Concomitant]
     Active Substance: FILGRASTIM
     Dosage: DOSE UNKNOWN
     Route: 048
  8. DOXORUBICIN HYDROCHLORIDE. [Concomitant]
     Active Substance: DOXORUBICIN HYDROCHLORIDE
     Dosage: DOSE UNKNOWN
     Route: 065
  9. BAKTAR [Concomitant]
     Active Substance: SULFAMETHOXAZOLE\TRIMETHOPRIM
     Dosage: DOSE UNKNOWN
     Route: 065
  10. ADRENAL HORMONE PREPARATIONS [Suspect]
     Active Substance: UNSPECIFIED INGREDIENT
     Indication: ASTHMA
     Dosage: DOSE UNKNOWN
     Route: 048
  11. CYCLOPHOSPHAMIDE HYDRATE [Concomitant]
     Active Substance: CYCLOPHOSPHAMIDE
     Dosage: DOSE UNKNOWN
     Route: 065

REACTIONS (8)
  - Diffuse large B-cell lymphoma [Unknown]
  - Benign prostatic hyperplasia [Unknown]
  - Stomatitis [Unknown]
  - Urinary retention [Unknown]
  - Neutropenia [Unknown]
  - Sinus tachycardia [Unknown]
  - Periarthritis [Unknown]
  - Asthma [Unknown]

NARRATIVE: CASE EVENT DATE: 20190312
